FAERS Safety Report 12265687 (Version 2)
Quarter: 2016Q2

REPORT INFORMATION
  Report Type: Report from Study
  Country: DE (occurrence: DE)
  Receive Date: 20160413
  Receipt Date: 20160512
  Transmission Date: 20160815
  Serious: Yes (Hospitalization)
  Sender: FDA-Public Use
  Company Number: PHHO2014DE012955

PATIENT
  Age: 58 Year
  Sex: Female
  Weight: 78.3 kg

DRUGS (23)
  1. HYDROCORTISONE. [Concomitant]
     Active Substance: HYDROCORTISONE
     Indication: ADRENAL INSUFFICIENCY
     Dosage: 25 MG, QD
     Route: 048
  2. EUTHYROX [Concomitant]
     Active Substance: LEVOTHYROXINE SODIUM
     Indication: HYPOTHYROIDISM
     Dosage: 100 UG, QD
     Route: 048
  3. ASPIRIN. [Concomitant]
     Active Substance: ASPIRIN
     Indication: PERIPHERAL ARTERIAL OCCLUSIVE DISEASE
     Dosage: 100 MG, QD
     Route: 048
  4. HYDROCORTISONE. [Concomitant]
     Active Substance: HYDROCORTISONE
     Dosage: 35 MG, QD
     Route: 048
  5. XELEVIA [Concomitant]
     Active Substance: SITAGLIPTIN PHOSPHATE
     Indication: TYPE 2 DIABETES MELLITUS
     Dosage: 50 MG, BID
     Route: 048
  6. CABASERIL [Concomitant]
     Active Substance: CABERGOLINE
     Indication: PRODUCT USED FOR UNKNOWN INDICATION
     Dosage: 1 MG, QW2 (TWO TIMES WEEKLY)
     Route: 048
  7. RAMIPRIL. [Concomitant]
     Active Substance: RAMIPRIL
     Indication: HYPERTENSION
     Dosage: 7.5 MG, QD
     Route: 048
  8. ASTONIN H [Concomitant]
     Dosage: 0.05 MG, QD
     Route: 048
  9. SERELYS [Concomitant]
     Indication: PROPHYLAXIS
     Dosage: 1 DF, QD
     Route: 048
  10. CARBAMAZEPIN [Concomitant]
     Active Substance: CARBAMAZEPINE
     Indication: PAIN
     Dosage: 100 MG, BID
     Route: 048
     Dates: start: 20160105
  11. NOVONORM [Concomitant]
     Active Substance: REPAGLINIDE
     Indication: TYPE 2 DIABETES MELLITUS
     Dosage: 1 MG, QD
     Route: 048
  12. LANSOPRAZOL [Concomitant]
     Active Substance: LANSOPRAZOLE
     Indication: PROPHYLAXIS
     Dosage: 30 MG, QD
     Route: 048
  13. PROTAPHANE [Concomitant]
     Active Substance: INSULIN HUMAN
     Dosage: 14 IE / D
     Route: 058
  14. ALLOPURINOL. [Concomitant]
     Active Substance: ALLOPURINOL
     Indication: HYPERURICAEMIA
     Dosage: 150 MG, QD
     Route: 065
  15. BERLTHYROX [Concomitant]
     Indication: HYPOTHYROIDISM
     Dosage: 50 UG, QD
     Route: 048
  16. TRIAMCINOLONE [Concomitant]
     Active Substance: TRIAMCINOLONE
     Indication: PAIN
     Dosage: EVERY 6-8 WEEKS
     Route: 065
  17. SOM230 [Suspect]
     Active Substance: PASIREOTIDE
     Indication: NELSON^S SYNDROME
     Dosage: 60 MG, EVERY 28 DAYS
     Route: 030
     Dates: start: 20110523, end: 20160308
  18. PROTAPHANE [Concomitant]
     Active Substance: INSULIN HUMAN
     Indication: TYPE 2 DIABETES MELLITUS
     Dosage: 10 U, QD
     Route: 058
  19. NOVORAPID [Concomitant]
     Active Substance: INSULIN ASPART
     Indication: TYPE 2 DIABETES MELLITUS
     Dosage: 12 IE / D
     Route: 058
  20. HCT [Concomitant]
     Active Substance: HYDROCHLOROTHIAZIDE
     Indication: HYPERTENSION
     Dosage: 12.5 MG, QD
     Route: 048
  21. ASTONIN H [Concomitant]
     Indication: ADRENAL INSUFFICIENCY
     Dosage: 0.05 MG, BID
     Route: 048
  22. DEKRISTOL [Concomitant]
     Active Substance: CHOLECALCIFEROL
     Indication: PROPHYLAXIS
     Dosage: 20000 IE, EVERY 14 DAYS
     Route: 048
  23. SIMVAHEXAL [Concomitant]
     Active Substance: SIMVASTATIN
     Indication: PROPHYLAXIS
     Dosage: 20 MG, QD
     Route: 048

REACTIONS (3)
  - Coronary artery disease [Not Recovered/Not Resolved]
  - Myocardial infarction [Recovered/Resolved]
  - Peripheral arterial occlusive disease [Not Recovered/Not Resolved]

NARRATIVE: CASE EVENT DATE: 20140916
